FAERS Safety Report 5279872-7 (Version None)
Quarter: 2007Q1

REPORT INFORMATION
  Report Type: 
  Country: None (occurrence: None)
  Receive Date: 20061215
  Receipt Date: 20060815
  Transmission Date: 20070707
  Serious: Yes (Other)
  Sender: FDA-Public Use
  Company Number: HQWYE814222AUG06

PATIENT

DRUGS (3)
  1. EFFEXOR XR [Suspect]
     Dosage: ORAL
     Route: 048
  2. LAMICTAL [Suspect]
  3. XANAX [Concomitant]

REACTIONS (1)
  - WHITE BLOOD CELL COUNT DECREASED [None]
